FAERS Safety Report 7804754-3 (Version None)
Quarter: 2011Q4

REPORT INFORMATION
  Report Type: 
  Country: None (occurrence: None)
  Receive Date: 20111010
  Receipt Date: 20111004
  Transmission Date: 20120403
  Serious: Yes (Other)
  Sender: FDA-Public Use
  Company Number: US-AMGEN-USASP2011051335

PATIENT
  Age: 46 Year
  Sex: Female

DRUGS (1)
  1. ENBREL [Suspect]
     Indication: RHEUMATOID ARTHRITIS
     Dosage: 50 MG, QWK
     Dates: start: 20110917

REACTIONS (8)
  - DIZZINESS [None]
  - HYPERTENSION [None]
  - INJECTION SITE INDURATION [None]
  - TINNITUS [None]
  - PAIN IN EXTREMITY [None]
  - VISUAL FIELD DEFECT [None]
  - INJECTION SITE HAEMATOMA [None]
  - HEADACHE [None]
